FAERS Safety Report 9767742 (Version 1)
Quarter: 2013Q4

REPORT INFORMATION
  Report Type: Spontaneous
  Country: AT (occurrence: AT)
  Receive Date: 20131217
  Receipt Date: 20131217
  Transmission Date: 20140711
  Serious: Yes (Other)
  Sender: FDA-Public Use
  Company Number: AT-VERTEX PHARMACEUTICALS INC-2013-011866

PATIENT
  Age: 60 Year
  Sex: Female

DRUGS (3)
  1. INCIVO [Suspect]
     Indication: HEPATITIS C
     Dates: start: 201209, end: 201308
  2. RIBAVIRIN [Suspect]
     Indication: HEPATITIS C
  3. INTERFERON [Suspect]
     Indication: HEPATITIS C

REACTIONS (1)
  - Hepatitis C [Not Recovered/Not Resolved]
